FAERS Safety Report 7797611-2 (Version None)
Quarter: 2011Q3

REPORT INFORMATION
  Report Type: 
  Country: None (occurrence: None)
  Receive Date: 20110927
  Receipt Date: 20110921
  Transmission Date: 20111222
  Serious: Yes (Other)
  Sender: FDA-Public Use
  Company Number: 2011028843

PATIENT
  Age: 21 Year
  Sex: Female
  Weight: 41.7309 kg

DRUGS (14)
  1. HIZENTRA [Suspect]
  2. BACTRIM [Concomitant]
  3. OXYBUTYNIN [Concomitant]
  4. HIZENTRA [Suspect]
     Indication: IMMUNODEFICIENCY COMMON VARIABLE
     Dosage: SEE IMAGE
     Route: 058
     Dates: start: 20100901
  5. MULTIVITAMIN (ACCOMIN MULTIVITAMIN) [Concomitant]
  6. VITAMIN D [Concomitant]
  7. IBUPROFEN [Concomitant]
  8. MIRALAX [Concomitant]
  9. ZYRTEC [Concomitant]
  10. CALCIUM CARBONATE [Concomitant]
  11. ACETAMINOPHEN [Concomitant]
  12. GLYCEROL 2.6% [Concomitant]
  13. FLEET ENEMA (PARAFFIN, LIQUID) [Concomitant]
  14. OCEAN NOSE SPRAY (SODIUM CHLORIDE) [Concomitant]

REACTIONS (3)
  - SINUSITIS [None]
  - DRUG INEFFECTIVE [None]
  - UPPER RESPIRATORY TRACT INFECTION [None]
